FAERS Safety Report 22329829 (Version 1)
Quarter: 2023Q2

REPORT INFORMATION
  Report Type: Spontaneous
  Country: IT (occurrence: IT)
  Receive Date: 20230517
  Receipt Date: 20230517
  Transmission Date: 20230721
  Serious: Yes (Life-Threatening)
  Sender: FDA-Public Use
  Company Number: None

PATIENT
  Age: 50 Year
  Sex: Male

DRUGS (3)
  1. CLONAZEPAM [Suspect]
     Active Substance: CLONAZEPAM
     Route: 048
     Dates: start: 20230330, end: 20230330
  2. HALOPERIDOL [Suspect]
     Active Substance: HALOPERIDOL
     Dosage: 2 MG/ML
     Route: 048
     Dates: start: 20230330, end: 20230330
  3. VALPROATE SODIUM [Concomitant]
     Active Substance: VALPROATE SODIUM

REACTIONS (3)
  - Toxicity to various agents [Unknown]
  - Delusion [Unknown]
  - Drug abuse [Unknown]

NARRATIVE: CASE EVENT DATE: 20230330
